FAERS Safety Report 9442119 (Version 15)
Quarter: 2015Q1

REPORT INFORMATION
  Report Type: Report from Study
  Country: CA (occurrence: CA)
  Receive Date: 20130806
  Receipt Date: 20150220
  Transmission Date: 20150721
  Serious: Yes (Life-Threatening, Hospitalization, Other)
  Sender: FDA-Public Use
  Company Number: PHHY2011CA17773

PATIENT
  Age: 39 Year
  Sex: Male

DRUGS (2)
  1. SANDOSTATIN LAR DEPOT [Suspect]
     Active Substance: OCTREOTIDE ACETATE
     Indication: NEUROENDOCRINE CARCINOMA METASTATIC
     Dosage: 30 MG, ONCE A MONTH
     Route: 030
     Dates: start: 20110203
  2. SANDOSTATIN LAR DEPOT [Suspect]
     Active Substance: OCTREOTIDE ACETATE
     Dosage: 30 MG, EVERY 4 WEEKS
     Route: 030

REACTIONS (28)
  - Terminal state [Unknown]
  - Hepatic neoplasm [Unknown]
  - Weight decreased [Unknown]
  - Face injury [Unknown]
  - Malaise [Unknown]
  - Dysphagia [Unknown]
  - Bone neoplasm [Unknown]
  - Pain in extremity [Recovering/Resolving]
  - Hypophagia [Unknown]
  - Diarrhoea [Unknown]
  - Injection site oedema [Unknown]
  - Abdominal discomfort [Unknown]
  - Abdominal pain [Unknown]
  - Ascites [Unknown]
  - Gastrointestinal haemorrhage [Unknown]
  - Dizziness [Recovered/Resolved]
  - Fatigue [Unknown]
  - Asthenia [Not Recovered/Not Resolved]
  - Fall [Unknown]
  - Nausea [Unknown]
  - Blood pressure increased [Unknown]
  - Scar [Unknown]
  - Heart rate increased [Unknown]
  - Pain [Unknown]
  - Vomiting [Unknown]
  - Loss of consciousness [Unknown]
  - Incorrect dose administered [Unknown]
  - Injection site pain [Unknown]

NARRATIVE: CASE EVENT DATE: 20110903
